FAERS Safety Report 8286430-9 (Version None)
Quarter: 2012Q2

REPORT INFORMATION
  Report Type: 
  Country: None (occurrence: None)
  Receive Date: 20120411
  Receipt Date: 20120411
  Transmission Date: 20120825
  Serious: Yes (Hospitalization)
  Sender: FDA-Public Use
  Company Number: None

PATIENT
  Age: 81 Year
  Sex: Male
  Weight: 84.8226 kg

DRUGS (1)
  1. SIMVASTATIN [Suspect]
     Indication: BLOOD CHOLESTEROL INCREASED
     Dosage: 80 MG DAILY MOUTH
     Route: 048
     Dates: start: 20110101, end: 20120101

REACTIONS (6)
  - BLOOD TEST ABNORMAL [None]
  - LIVER DISORDER [None]
  - ABASIA [None]
  - MUSCULAR WEAKNESS [None]
  - MUSCLE DISORDER [None]
  - CORONARY ARTERY OCCLUSION [None]
